FAERS Safety Report 7879481-7 (Version None)
Quarter: 2011Q4

REPORT INFORMATION
  Report Type: 
  Country: None (occurrence: None)
  Receive Date: 20111101
  Receipt Date: 20101108
  Transmission Date: 20120403
  Serious: No
  Sender: FDA-Public Use
  Company Number: US-ABBOTT-10P-163-0684374-00

PATIENT
  Sex: Female
  Weight: 99.88 kg

DRUGS (4)
  1. BIAXIN [Suspect]
     Dates: start: 20101008, end: 20101010
  2. BIAXIN [Suspect]
     Indication: SINUSITIS
     Route: 048
     Dates: start: 20100927, end: 20101006
  3. LEVOTHYROXINE SODIUM [Concomitant]
     Indication: HYPOTHYROIDISM
  4. REBIF [Concomitant]
     Indication: MULTIPLE SCLEROSIS
     Dates: end: 20101010

REACTIONS (1)
  - DRUG INEFFECTIVE [None]
